FAERS Safety Report 11428214 (Version 1)
Quarter: 2015Q3

REPORT INFORMATION
  Report Type: Spontaneous
  Country: US (occurrence: US)
  Receive Date: 20150828
  Receipt Date: 20150828
  Transmission Date: 20151125
  Serious: Yes (Other)
  Sender: FDA-Public Use
  Company Number: US-ROCHE-1271014

PATIENT
  Age: 59 Year
  Sex: Female
  Weight: 64.47 kg

DRUGS (6)
  1. PEGASYS [Suspect]
     Active Substance: PEGINTERFERON ALFA-2A
     Route: 058
     Dates: start: 2006
  2. RIBASPHERE [Suspect]
     Active Substance: RIBAVIRIN
     Route: 048
     Dates: start: 20130904
  3. PEGASYS [Suspect]
     Active Substance: PEGINTERFERON ALFA-2A
     Indication: CHRONIC HEPATITIS C
     Route: 058
     Dates: start: 20130904
  4. RIBASPHERE [Suspect]
     Active Substance: RIBAVIRIN
     Route: 048
     Dates: start: 2006
  5. INCIVEK [Suspect]
     Active Substance: TELAPREVIR
     Indication: CHRONIC HEPATITIS C
     Route: 048
     Dates: start: 20130904
  6. RIBASPHERE [Suspect]
     Active Substance: RIBAVIRIN
     Indication: CHRONIC HEPATITIS C
     Dosage: DAILY IN TWO DIVIDED DOSES 200 MG AM AND 400 MG PM
     Route: 048
     Dates: start: 20130904

REACTIONS (3)
  - Vomiting [Recovered/Resolved]
  - Hepatitis C [Unknown]
  - Nausea [Recovered/Resolved]

NARRATIVE: CASE EVENT DATE: 20130905
